FAERS Safety Report 8162062-8 (Version None)
Quarter: 2012Q1

REPORT INFORMATION
  Report Type: 
  Country: None (occurrence: None)
  Receive Date: 20120224
  Receipt Date: 20110708
  Transmission Date: 20120608
  Serious: Yes (Hospitalization)
  Sender: FDA-Public Use
  Company Number: US-BRISTOL-MYERS SQUIBB COMPANY-15834260

PATIENT
  Sex: Female

DRUGS (4)
  1. INSULIN GLARGINE [Concomitant]
  2. GLUCOPHAGE [Suspect]
     Route: 065
  3. HUMULIN R [Concomitant]
  4. AMARYL [Suspect]
     Route: 065

REACTIONS (1)
  - HYPERGLYCAEMIA [None]
